FAERS Safety Report 23746684 (Version 1)
Quarter: 2024Q2

REPORT INFORMATION
  Report Type: Report from Study
  Country: DE (occurrence: DE)
  Receive Date: 20240416
  Receipt Date: 20240416
  Transmission Date: 20240716
  Serious: Yes (Other)
  Sender: FDA-Public Use
  Company Number: DE-SUN PHARMACEUTICAL INDUSTRIES LTD-2024RR-442414

PATIENT
  Sex: Female

DRUGS (5)
  1. TEMOZOLOMIDE [Suspect]
     Active Substance: TEMOZOLOMIDE
     Indication: Metastases to lung
     Dosage: UNK, 3 CYCLES
     Route: 065
  2. DOXORUBICIN [Suspect]
     Active Substance: DOXORUBICIN
     Indication: Metastases to lung
     Dosage: 6 CYCLES
     Route: 065
  3. CISPLATIN [Suspect]
     Active Substance: CISPLATIN
     Indication: Metastases to lung
     Dosage: 6 CYCLES
     Route: 065
  4. ETOPOSIDE [Suspect]
     Active Substance: ETOPOSIDE
     Indication: Metastases to lung
     Dosage: 6 CYCLES
     Route: 065
  5. MITOTANE [Suspect]
     Active Substance: MITOTANE
     Indication: Metastases to lung
     Dosage: 6 CYCLES
     Route: 065

REACTIONS (5)
  - Drug ineffective [Unknown]
  - Disease progression [Unknown]
  - Metastases to liver [Unknown]
  - Metastases to lung [Unknown]
  - Therapeutic product effect incomplete [Unknown]
